FAERS Safety Report 9171234 (Version 5)
Quarter: 2016Q1

REPORT INFORMATION
  Report Type: Report from Study
  Country: CA (occurrence: CA)
  Receive Date: 20130319
  Receipt Date: 20160129
  Transmission Date: 20160526
  Serious: Yes (Death, Hospitalization)
  Sender: FDA-Public Use
  Company Number: CA-ROCHE-1105294

PATIENT
  Age: 68 Year
  Sex: Female
  Weight: 89 kg

DRUGS (23)
  1. WARFARIN [Concomitant]
     Active Substance: WARFARIN
     Route: 048
     Dates: start: 2007, end: 20120820
  2. PAROXETINE [Concomitant]
     Active Substance: PAROXETINE\PAROXETINE HYDROCHLORIDE
     Route: 048
     Dates: start: 1989
  3. PREDNISONE. [Concomitant]
     Active Substance: PREDNISONE
     Route: 048
     Dates: start: 20120825, end: 20120831
  4. GLICLAZIDE [Concomitant]
     Active Substance: GLICLAZIDE
     Route: 048
     Dates: start: 2000, end: 20120820
  5. GABAPENTIN. [Concomitant]
     Active Substance: GABAPENTIN
     Route: 048
     Dates: start: 2008
  6. PREDNISONE. [Concomitant]
     Active Substance: PREDNISONE
     Route: 048
     Dates: start: 20120820, end: 20120824
  7. APO-FENO-SUPER [Concomitant]
     Active Substance: FENOFIBRATE
     Route: 048
     Dates: start: 2000, end: 20120820
  8. PREDNISONE. [Concomitant]
     Active Substance: PREDNISONE
     Indication: RHEUMATOID ARTHRITIS
     Route: 048
     Dates: start: 20120612, end: 20120820
  9. AMLODIPINE [Concomitant]
     Active Substance: AMLODIPINE BESYLATE
     Route: 048
     Dates: start: 2000, end: 20120820
  10. OMEPRAZOLE. [Concomitant]
     Active Substance: OMEPRAZOLE
     Route: 048
     Dates: start: 2002
  11. PRO-CEFADROXIL [Concomitant]
     Route: 048
     Dates: start: 20120604, end: 20120820
  12. TOCILIZUMAB [Suspect]
     Active Substance: TOCILIZUMAB
     Indication: RHEUMATOID ARTHRITIS
     Dosage: MOST RECENT DOSE PRIOR TO SAE:10/JUL/2012
     Route: 042
     Dates: start: 20111228
  13. HYDROCHLOROTHIAZIDE. [Concomitant]
     Active Substance: HYDROCHLOROTHIAZIDE
     Route: 048
     Dates: start: 2000, end: 20120820
  14. INSULIN-TORONTO [Concomitant]
     Dosage: 100 UNITS
     Route: 042
     Dates: start: 20120820, end: 20120831
  15. APO-RAMIPRIL [Concomitant]
     Active Substance: RAMIPRIL
     Route: 048
     Dates: start: 2000, end: 20120820
  16. CRESTOR [Concomitant]
     Active Substance: ROSUVASTATIN CALCIUM
     Route: 048
     Dates: start: 2000, end: 20120820
  17. GABAPENTIN. [Concomitant]
     Active Substance: GABAPENTIN
     Route: 048
     Dates: start: 2008
  18. PLAQUENIL [Concomitant]
     Active Substance: HYDROXYCHLOROQUINE SULFATE
     Indication: RHEUMATOID ARTHRITIS
     Route: 048
     Dates: start: 20120320, end: 20120820
  19. PLACEBO [Suspect]
     Active Substance: UNSPECIFIED INGREDIENT
     Indication: RHEUMATOID ARTHRITIS
     Dosage: MOST RECENT DOSE PRIOR TO SAE: 13/DEC/2011
     Route: 058
     Dates: start: 20110705
  20. CIPRO [Concomitant]
     Active Substance: CIPROFLOXACIN HYDROCHLORIDE
     Route: 048
     Dates: start: 20120803, end: 20120811
  21. HEPARIN [Suspect]
     Active Substance: HEPARIN SODIUM
     Indication: PRODUCT USED FOR UNKNOWN INDICATION
     Dosage: 5000 UNITS
     Route: 058
     Dates: start: 20120820, end: 20120830
  22. TOCILIZUMAB [Suspect]
     Active Substance: TOCILIZUMAB
     Indication: RHEUMATOID ARTHRITIS
     Dosage: MOST RECENT DOSE PRIOR TO SAE: 22/NOV/2011
     Route: 042
     Dates: start: 20110705
  23. METFORMIN [Concomitant]
     Active Substance: METFORMIN HYDROCHLORIDE
     Route: 048
     Dates: start: 2005, end: 20120820

REACTIONS (2)
  - Acute respiratory distress syndrome [Fatal]
  - Thrombocytopenia [Unknown]

NARRATIVE: CASE EVENT DATE: 20120820
